FAERS Safety Report 6811681-7 (Version None)
Quarter: 2010Q3

REPORT INFORMATION
  Report Type: 
  Country: None (occurrence: None)
  Receive Date: 20100701
  Receipt Date: 20100623
  Transmission Date: 20110219
  Serious: No
  Sender: FDA-Public Use
  Company Number: US-BIOGENIDEC-2010BI021759

PATIENT
  Age: 45 Year
  Sex: Female

DRUGS (1)
  1. TYSABRI [Suspect]
     Indication: MULTIPLE SCLEROSIS
     Route: 042
     Dates: start: 20090501

REACTIONS (6)
  - AGEUSIA [None]
  - DYSPHONIA [None]
  - FATIGUE [None]
  - HYPOAESTHESIA [None]
  - PARAESTHESIA [None]
  - VISUAL IMPAIRMENT [None]
